FAERS Safety Report 9706988 (Version 2)
Quarter: 2013Q4

REPORT INFORMATION
  Report Type: Spontaneous
  Country: US (occurrence: US)
  Receive Date: 20131125
  Receipt Date: 20131219
  Transmission Date: 20140711
  Serious: No
  Sender: FDA-Public Use
  Company Number: US-PFIZER INC-2013334799

PATIENT
  Age: 63 Year
  Sex: Female
  Weight: 77.1 kg

DRUGS (1)
  1. LYRICA [Suspect]
     Indication: PERIPHERAL NERVE INJURY
     Dosage: 50 MG, 3X/DAY
     Dates: end: 201306

REACTIONS (1)
  - Pain [Not Recovered/Not Resolved]
